FAERS Safety Report 17855745 (Version 1)
Quarter: 2020Q2

REPORT INFORMATION
  Report Type: Spontaneous
  Country: US (occurrence: US)
  Receive Date: 20200603
  Receipt Date: 20200603
  Transmission Date: 20200714
  Serious: No
  Sender: FDA-Public Use
  Company Number: None

PATIENT
  Age: 66 Year
  Sex: Female
  Weight: 70 kg

DRUGS (11)
  1. PROPOFOL. [Concomitant]
     Active Substance: PROPOFOL
     Dates: start: 20200524, end: 20200527
  2. INSULIN ASPART [Concomitant]
     Active Substance: INSULIN ASPART
     Dates: start: 20200524, end: 20200603
  3. METHYLPREDNISOLONE. [Concomitant]
     Active Substance: METHYLPREDNISOLONE
     Dates: start: 20200524, end: 20200531
  4. PANTOPRAZOLE [Concomitant]
     Active Substance: PANTOPRAZOLE
     Dates: start: 20200524, end: 20200603
  5. AZITHROMYCIN ANHYDROUS. [Concomitant]
     Active Substance: AZITHROMYCIN ANHYDROUS
     Dates: start: 20200524, end: 20200529
  6. ALBUTEROL. [Concomitant]
     Active Substance: ALBUTEROL
     Dates: start: 20200524, end: 20200603
  7. IPRATROPIUM [Concomitant]
     Active Substance: IPRATROPIUM
     Dates: start: 20200524, end: 20200603
  8. FENTANYL. [Concomitant]
     Active Substance: FENTANYL
     Dates: start: 20200524, end: 20200527
  9. REMDESIVIR. [Suspect]
     Active Substance: REMDESIVIR
     Indication: SARS-COV-2 TEST POSITIVE
     Route: 042
     Dates: start: 20200524, end: 20200528
  10. CEFEPIME [Concomitant]
     Active Substance: CEFEPIME HYDROCHLORIDE
     Dates: start: 20200524, end: 20200529
  11. ENOXAPARIN [Concomitant]
     Active Substance: ENOXAPARIN
     Dates: start: 20200524, end: 20200603

REACTIONS (1)
  - Acute kidney injury [None]

NARRATIVE: CASE EVENT DATE: 20200525
